FAERS Safety Report 7279763-6 (Version None)
Quarter: 2011Q1

REPORT INFORMATION
  Report Type: 
  Country: None (occurrence: None)
  Receive Date: 20110208
  Receipt Date: 20110125
  Transmission Date: 20110831
  Serious: Yes (Death, Hospitalization)
  Sender: FDA-Public Use
  Company Number: GB-JNJFOC-20110107182

PATIENT
  Age: 80 Year
  Sex: Female

DRUGS (2)
  1. PARACETAMOL [Suspect]
     Route: 065
  2. PARACETAMOL [Suspect]
     Indication: PRODUCT USED FOR UNKNOWN INDICATION
     Route: 065

REACTIONS (5)
  - METABOLIC ACIDOSIS [None]
  - VOMITING [None]
  - OVERDOSE [None]
  - HYPOTENSION [None]
  - COMA [None]
